FAERS Safety Report 9484788 (Version 3)
Quarter: 2013Q3

REPORT INFORMATION
  Report Type: Spontaneous
  Country: GB (occurrence: GB)
  Receive Date: 20130828
  Receipt Date: 20130927
  Transmission Date: 20140515
  Serious: Yes (Life-Threatening, Hospitalization, Disabling)
  Sender: FDA-Public Use
  Company Number: GB-GLAXOSMITHKLINE-B0525102A

PATIENT
  Age: 63 Year
  Sex: Male
  Weight: 154 kg

DRUGS (5)
  1. AVANDIA [Suspect]
     Indication: TYPE 2 DIABETES MELLITUS
     Dosage: 4MG TWICE PER DAY
     Route: 048
     Dates: start: 20010109, end: 20070412
  2. METFORMIN [Concomitant]
     Dosage: 500MG TWICE PER DAY
     Route: 048
     Dates: start: 200108
  3. GLICLAZIDE [Concomitant]
     Dosage: 160MG TWICE PER DAY
     Route: 048
     Dates: start: 200207
  4. LISINOPRIL [Concomitant]
     Dosage: 2.5G PER DAY
     Route: 048
     Dates: start: 200203
  5. ATORVASTATIN [Concomitant]
     Route: 065
     Dates: start: 200207

REACTIONS (2)
  - Congestive cardiomyopathy [Recovering/Resolving]
  - Mitral valve incompetence [Unknown]
